FAERS Safety Report 11145241 (Version 1)
Quarter: 2015Q2

REPORT INFORMATION
  Report Type: Spontaneous
  Country: GB (occurrence: GB)
  Receive Date: 20150528
  Receipt Date: 20150528
  Transmission Date: 20150821
  Serious: Yes (Hospitalization)
  Sender: FDA-Public Use
  Company Number: GB-TEVA-565056ACC

PATIENT
  Age: 65 Year
  Sex: Male
  Weight: 58 kg

DRUGS (12)
  1. VERAPAMIL [Concomitant]
     Active Substance: VERAPAMIL HYDROCHLORIDE
     Indication: HYPERTENSION
     Dosage: 480 MILLIGRAM DAILY;
     Route: 065
     Dates: start: 20130226
  2. EPIRUBICIN [Suspect]
     Active Substance: EPIRUBICIN
     Indication: GASTROOESOPHAGEAL CANCER
     Dosage: DATE OF MOST RECENT DOSE PRIOR TO EVENT 18/JUL/2013ACTUAL DOSE GIVEN AT MOST RECENT ADMINISTRATION
     Route: 042
     Dates: start: 20130205
  3. LATANOPROST. [Concomitant]
     Active Substance: LATANOPROST
     Indication: GLAUCOMA
     Dosage: 0.0015-1 DROP BOTH EYES
     Route: 065
     Dates: start: 20130129
  4. OMEPRAZOLE. [Concomitant]
     Active Substance: OMEPRAZOLE
     Indication: DYSPEPSIA
     Route: 065
     Dates: start: 20130129
  5. CISPLATIN. [Suspect]
     Active Substance: CISPLATIN
     Indication: GASTROOESOPHAGEAL CANCER
     Dosage: DATE OF MOST RECENT DOSE PRIOR TO EVENT EVENT 18/JUL/2013ACTUAL DOSE GIVEN AT MOST RECENT ADMINISTR
     Route: 042
     Dates: start: 20130205
  6. GAVISCON [Concomitant]
     Active Substance: ALUMINUM HYDROXIDE\MAGNESIUM CARBONATE
     Indication: DYSPEPSIA
     Dosage: 10MIS PRN
     Route: 065
     Dates: start: 20130129
  7. XELODA [Suspect]
     Active Substance: CAPECITABINE
     Indication: GASTROOESOPHAGEAL CANCER
     Dosage: DATE OF MOST RECENT DOSE PRIOR TO EVENT 24/JUL/2013?ACTUAL DOSE GIVEN AT MOST RECENT ADMINISTRATION
     Route: 048
     Dates: start: 20130205
  8. METOCLOPRAMIDE. [Concomitant]
     Active Substance: METOCLOPRAMIDE
     Dosage: 30 MILLIGRAM DAILY;
     Route: 065
     Dates: start: 20130205
  9. ONDANSETRON [Concomitant]
     Active Substance: ONDANSETRON
     Indication: NAUSEA
     Dosage: 16 MILLIGRAM DAILY;
     Route: 065
     Dates: start: 20130205
  10. AVASTIN [Suspect]
     Active Substance: BEVACIZUMAB
     Indication: GASTROOESOPHAGEAL CANCER
     Dosage: DATE OF MOST RECENT DOSE PRIOR TO EVENT 18/JUL/2013ACTUAL DOSE GIVEN AT MOST RECENT ADMINISTRATION
     Route: 042
     Dates: start: 20130205
  11. RAMIPRIL. [Concomitant]
     Active Substance: RAMIPRIL
     Route: 048
     Dates: start: 20130121
  12. TIMOLOL [Concomitant]
     Active Substance: TIMOLOL
     Indication: GLAUCOMA
     Dosage: 2 DOSAGE FORMS DAILY; 1 DROP BOTH EYES
     Route: 065
     Dates: start: 20130129

REACTIONS (4)
  - Decreased appetite [Recovered/Resolved]
  - Fatigue [Recovered/Resolved]
  - Diarrhoea [Unknown]
  - Nausea [Recovered/Resolved]

NARRATIVE: CASE EVENT DATE: 20130724
